FAERS Safety Report 19663349 (Version 2)
Quarter: 2024Q1

REPORT INFORMATION
  Report Type: Spontaneous
  Country: US (occurrence: US)
  Receive Date: 20210805
  Receipt Date: 20240116
  Transmission Date: 20240410
  Serious: No
  Sender: FDA-Public Use
  Company Number: US-SK LIFE SCIENCE, INC-SKPVG-2020-000023

PATIENT

DRUGS (3)
  1. XCOPRI [Suspect]
     Active Substance: CENOBAMATE
     Indication: Seizure
     Dosage: UNK
     Route: 048
  2. XCOPRI [Suspect]
     Active Substance: CENOBAMATE
     Indication: Generalised tonic-clonic seizure
     Dosage: 200 MILLIGRAM, ONCE DAILY
     Route: 048
     Dates: end: 20230208
  3. XCOPRI [Suspect]
     Active Substance: CENOBAMATE
     Indication: Petit mal epilepsy

REACTIONS (13)
  - Generalised tonic-clonic seizure [Unknown]
  - Petit mal epilepsy [Unknown]
  - Seizure [Unknown]
  - Arthralgia [Unknown]
  - Hand fracture [Unknown]
  - Lip injury [Unknown]
  - Seizure [Not Recovered/Not Resolved]
  - Product use issue [Not Recovered/Not Resolved]
  - Face injury [Unknown]
  - Pain in extremity [Unknown]
  - Product use in unapproved indication [Unknown]
  - Back pain [Unknown]
  - Insomnia [Unknown]

NARRATIVE: CASE EVENT DATE: 20200616
